FAERS Safety Report 5242889-2 (Version None)
Quarter: 2007Q1

REPORT INFORMATION
  Report Type: 
  Country: None (occurrence: None)
  Receive Date: 20070221
  Receipt Date: 20070212
  Transmission Date: 20070707
  Serious: No
  Sender: FDA-Public Use
  Company Number: US-ELI_LILLY_AND_COMPANY-US200602000829

PATIENT
  Age: 35 Year
  Sex: Female
  Weight: 77.097 kg

DRUGS (22)
  1. NEURONTIN [Concomitant]
     Indication: BACK PAIN
     Dosage: 300 MG, 3/D
     Dates: start: 20000301, end: 20010305
  2. NEURONTIN [Concomitant]
     Dosage: 600 MG, EVERY 6 HRS
     Dates: start: 20010305
  3. CELEXA [Concomitant]
  4. ZITHROMAX [Concomitant]
     Dosage: UNK, UNKNOWN
     Dates: start: 20000929
  5. NORVASC [Concomitant]
     Indication: HYPERTENSION
     Dosage: 5 MG, DAILY (1/D)
     Dates: start: 20000301, end: 20010305
  6. PAXIL [Concomitant]
     Indication: DEPRESSION
     Dosage: 20 MG, UNKNOWN
     Dates: start: 20000301, end: 20010305
  7. PAXIL [Concomitant]
     Dosage: 30 MG, EACH MORNING
     Dates: start: 20010305
  8. AMBIEN [Concomitant]
     Indication: INSOMNIA
     Dosage: 10 MG, AS NEEDED
     Dates: start: 20000301, end: 20010305
  9. AMBIEN [Concomitant]
     Dosage: 5 MG, EACH EVENING
     Dates: start: 20010305
  10. VIOXX [Concomitant]
     Dosage: 25 MG, 2/D
     Dates: start: 20000301
  11. PERCOCET [Concomitant]
     Dosage: UNK, UNKNOWN
     Dates: start: 20000320, end: 20000424
  12. SKELAXIN [Concomitant]
     Dosage: UNK, UNKNOWN
     Dates: start: 20000419
  13. OXYCONTIN [Concomitant]
     Dosage: 20 MG, 2/D
     Dates: start: 20000714, end: 20000728
  14. OXYCONTIN [Concomitant]
     Dosage: 20 MG, 2/D
     Dates: start: 20010305
  15. VITAMIN B-C-E W/FOLIC ACID/BIOTIN [Concomitant]
     Dosage: UNK, UNKNOWN
     Route: 030
     Dates: start: 20000911
  16. XANAX [Concomitant]
     Dosage: 0.25 MG, 3/D
     Dates: start: 20010207, end: 20010305
  17. XANAX [Concomitant]
     Dosage: 1 MG, 2/D
     Dates: start: 20010305
  18. VASOTEC [Concomitant]
     Dosage: 20 MG, EACH MORNING
     Dates: start: 20010305
  19. PREVACID [Concomitant]
     Dosage: 30 MG, DAILY (1/D)
     Dates: start: 20010305
  20. PREMARIN [Concomitant]
     Dosage: 1.25 MG, DAILY (1/D)
     Dates: start: 20010305
  21. DURAGESIC-100 [Concomitant]
     Dosage: 50 MEQ, OTHER
     Dates: start: 20010131
  22. ZYPREXA [Suspect]
     Indication: DEPRESSION
     Dosage: 10 MG, UNKNOWN
     Dates: start: 19990101, end: 20020405

REACTIONS (6)
  - DIABETES MELLITUS NON-INSULIN-DEPENDENT [None]
  - HAEMATOCHEZIA [None]
  - HYPERTENSION [None]
  - METABOLIC DISORDER [None]
  - NEUROPATHY PERIPHERAL [None]
  - WEIGHT INCREASED [None]
